FAERS Safety Report 7470348-5 (Version None)
Quarter: 2011Q2

REPORT INFORMATION
  Report Type: 
  Country: None (occurrence: None)
  Receive Date: 20110510
  Receipt Date: 20100910
  Transmission Date: 20111010
  Serious: Yes (Other)
  Sender: FDA-Public Use
  Company Number: US-SHIRE-SPV1-2010-01584

PATIENT
  Sex: Female
  Weight: 63.492 kg

DRUGS (4)
  1. ADDERALL XR 10 [Suspect]
     Dosage: 20 MG, 1X/DAY:QD
     Route: 048
     Dates: start: 20100910
  2. BENADRYL [Concomitant]
     Indication: SLEEP DISORDER
     Dosage: 25 MG, AS REQ'D
     Route: 048
  3. CELEXA [Concomitant]
     Indication: DEPRESSION
     Dosage: 20 MG, 1X/DAY:QD
     Route: 048
  4. ADDERALL XR 10 [Suspect]
     Indication: ATTENTION DEFICIT/HYPERACTIVITY DISORDER
     Dosage: 40MG DAILY
     Route: 048
     Dates: start: 19980101, end: 20010101

REACTIONS (13)
  - HEART RATE INCREASED [None]
  - SYNCOPE [None]
  - THIRST DECREASED [None]
  - POST-TRAUMATIC STRESS DISORDER [None]
  - ANXIETY DISORDER [None]
  - WEIGHT DECREASED [None]
  - DRUG EFFECT INCREASED [None]
  - DECREASED APPETITE [None]
  - OVERDOSE [None]
  - BIPOLAR DISORDER [None]
  - TREMOR [None]
  - INSOMNIA [None]
  - IMPULSIVE BEHAVIOUR [None]
